FAERS Safety Report 5356920-7 (Version None)
Quarter: 2007Q2

REPORT INFORMATION
  Report Type: 
  Country: None (occurrence: None)
  Receive Date: 20070614
  Receipt Date: 20060626
  Transmission Date: 20071010
  Serious: No
  Sender: FDA-Public Use
  Company Number: US-ASTRAZENECA-2006UW13431

PATIENT
  Age: 56 Year
  Sex: Male
  Weight: 102.1 kg

DRUGS (1)
  1. ATACAND HCT [Suspect]
     Indication: HYPERTENSION
     Dosage: 32-12.5 MG
     Route: 048
     Dates: start: 20060623

REACTIONS (1)
  - HYPERTENSION [None]
